FAERS Safety Report 8250902-3 (Version None)
Quarter: 2012Q1

REPORT INFORMATION
  Report Type: 
  Country: None (occurrence: None)
  Receive Date: 20120328
  Receipt Date: 20120316
  Transmission Date: 20120608
  Serious: Yes (Other)
  Sender: FDA-Public Use
  Company Number: AUR-APL-2009-01251

PATIENT
  Age: 58 Year
  Sex: Female
  Weight: 77 kg

DRUGS (12)
  1. SIMVASTATIN [Suspect]
     Indication: PRODUCT USED FOR UNKNOWN INDICATION
  2. LIPITOR [Suspect]
     Indication: PRODUCT USED FOR UNKNOWN INDICATION
     Dosage: 10 MG, 1 IN 1 D, ORAL; ORAL
     Route: 048
     Dates: start: 20091026
  3. LIPITOR [Suspect]
     Indication: BLOOD TRIGLYCERIDES INCREASED
     Dosage: 10 MG, 1 IN 1 D, ORAL; ORAL
     Route: 048
     Dates: start: 20091026
  4. LIPITOR [Suspect]
     Indication: PRODUCT USED FOR UNKNOWN INDICATION
     Dosage: 10 MG, 1 IN 1 D, ORAL; ORAL
     Route: 048
     Dates: start: 20100101
  5. LIPITOR [Suspect]
     Indication: BLOOD TRIGLYCERIDES INCREASED
     Dosage: 10 MG, 1 IN 1 D, ORAL; ORAL
     Route: 048
     Dates: start: 20100101
  6. INDAPAMIDE [Concomitant]
  7. GALVUS (VILDGLIPTIN) [Concomitant]
  8. DIOVAN [Concomitant]
  9. EXODUS (NICOTINE) [Concomitant]
  10. METFORMIN HCL [Concomitant]
  11. DIAMICRON (GLICICLAZIDE) [Concomitant]
  12. DIOVAN HCT (CO-DIOVAN) [Concomitant]

REACTIONS (10)
  - DIABETES MELLITUS INADEQUATE CONTROL [None]
  - DECREASED APPETITE [None]
  - NERVOUSNESS [None]
  - FEELING ABNORMAL [None]
  - PAIN [None]
  - ISCHAEMIC STROKE [None]
  - FATIGUE [None]
  - MALAISE [None]
  - HAEMORRHAGIC STROKE [None]
  - ANEURYSM [None]
